FAERS Safety Report 11361936 (Version 1)
Quarter: 2015Q3

REPORT INFORMATION
  Report Type: Spontaneous
  Country: US (occurrence: US)
  Receive Date: 20150810
  Receipt Date: 20150810
  Transmission Date: 20151125
  Serious: No
  Sender: FDA-Public Use
  Company Number: US-BAYER-2015-396661

PATIENT
  Age: 64 Year
  Sex: Female
  Weight: 58.96 kg

DRUGS (3)
  1. CLARITIN [Suspect]
     Active Substance: LORATADINE
     Indication: SEASONAL ALLERGY
     Dosage: UNK
     Dates: start: 1995, end: 1995
  2. CLARITIN [Suspect]
     Active Substance: LORATADINE
     Indication: SEASONAL ALLERGY
     Dosage: 2 DF, FIRST TABLET AT 08:00 AND THE SECOND TABLET AT 11:30
     Dates: start: 20150804, end: 20150804
  3. CLARITIN [Suspect]
     Active Substance: LORATADINE
     Indication: SEASONAL ALLERGY
     Dosage: 1 DF, PRN
     Route: 048
     Dates: start: 201507

REACTIONS (1)
  - Product use issue [None]

NARRATIVE: CASE EVENT DATE: 20150804
